FAERS Safety Report 9558550 (Version 1)
Quarter: 2013Q3

REPORT INFORMATION
  Report Type: Report from Study
  Country: US (occurrence: US)
  Receive Date: 20130926
  Receipt Date: 20130926
  Transmission Date: 20140515
  Serious: Yes (Death, Congenital Anomaly, Other)
  Sender: FDA-Public Use
  Company Number: US-GILEAD-2013-0084012

PATIENT
  Sex: 0

DRUGS (3)
  1. EMTRICITABINE/TENOFOVIR DISOPROXIL FUMARATE [Suspect]
     Indication: HIV INFECTION
     Route: 064
  2. DARUNAVIR [Suspect]
     Indication: HIV INFECTION
     Route: 064
  3. RALTEGRAVIR [Suspect]
     Indication: HIV INFECTION
     Route: 064

REACTIONS (3)
  - Ventricular septal defect [Fatal]
  - Pulmonary hypoplasia [Fatal]
  - Congenital aortic anomaly [Fatal]
